FAERS Safety Report 4449607-6 (Version None)
Quarter: 2004Q3

REPORT INFORMATION
  Report Type: 
  Country: None (occurrence: None)
  Receive Date: 20040913
  Receipt Date: 20040901
  Transmission Date: 20050211
  Serious: Yes (Other)
  Sender: FDA-Public Use
  Company Number: 2004061155

PATIENT
  Age: 64 Year
  Sex: Female
  Weight: 61.2356 kg

DRUGS (4)
  1. NICOTROL [Suspect]
     Indication: SMOKING CESSATION THERAPY
     Dosage: 1 CARTRIDGE EVERY 2 TO 3 DAYS OFF  AND ON, INHALATION
     Route: 055
     Dates: start: 20031001, end: 20040101
  2. VALDECOXIB [Concomitant]
  3. SIMVASTATIN [Concomitant]
  4. NICOTINIC ACID [Concomitant]

REACTIONS (2)
  - MYOCARDIAL INFARCTION [None]
  - TREATMENT NONCOMPLIANCE [None]
